FAERS Safety Report 5075925-7 (Version None)
Quarter: 2006Q3

REPORT INFORMATION
  Report Type: 
  Country: None (occurrence: None)
  Receive Date: 20060808
  Receipt Date: 20060808
  Transmission Date: 20061208
  Serious: Yes (Hospitalization, Disabling, Other)
  Sender: FDA-Public Use
  Company Number: None

PATIENT
  Age: 57 Year
  Sex: Female
  Weight: 57.6068 kg

DRUGS (1)
  1. DEPO-MEDROL [Suspect]
     Indication: SCIATICA
     Dosage: 80 MG EPIDURAL
     Route: 008
     Dates: start: 20000125, end: 20000209

REACTIONS (11)
  - ARACHNOIDITIS [None]
  - GAIT DISTURBANCE [None]
  - IMPAIRED DRIVING ABILITY [None]
  - IMPAIRED WORK ABILITY [None]
  - INJURY [None]
  - INTERVERTEBRAL DISC PROTRUSION [None]
  - OEDEMA PERIPHERAL [None]
  - OFF LABEL USE [None]
  - ORAL DISCHARGE [None]
  - RHINORRHOEA [None]
  - SPINAL DISORDER [None]
